FAERS Safety Report 4995954-9 (Version None)
Quarter: 2006Q2

REPORT INFORMATION
  Report Type: 
  Country: None (occurrence: None)
  Receive Date: 20060508
  Receipt Date: 20051005
  Transmission Date: 20061013
  Serious: Yes (Hospitalization, Disabling)
  Sender: FDA-Public Use
  Company Number: US-MERCK-0510USA04211

PATIENT
  Age: 40 Year
  Sex: Female
  Weight: 85 kg

DRUGS (2)
  1. VIOXX [Suspect]
     Indication: MUSCLE SPASMS
     Route: 048
     Dates: start: 20000101, end: 20030101
  2. VIOXX [Suspect]
     Indication: BACK PAIN
     Route: 048
     Dates: start: 20000101, end: 20030101

REACTIONS (19)
  - ASTHMA [None]
  - BACK PAIN [None]
  - CARDIAC DISORDER [None]
  - CEREBROVASCULAR ACCIDENT [None]
  - CHEST PAIN [None]
  - CHRONIC OBSTRUCTIVE PULMONARY DISEASE [None]
  - DEEP VEIN THROMBOSIS [None]
  - DIVERTICULUM [None]
  - DYSPNOEA [None]
  - HAEMORRHAGE [None]
  - HYDRONEPHROSIS [None]
  - HYPERTENSION [None]
  - INTERVERTEBRAL DISC PROTRUSION [None]
  - LUNG DISORDER [None]
  - OVARIAN DISORDER [None]
  - PELVIC NEOPLASM [None]
  - PULMONARY EMBOLISM [None]
  - SPINAL DISORDER [None]
  - URINARY TRACT DISORDER [None]
